FAERS Safety Report 8843053 (Version 1)
Quarter: 2012Q4

REPORT INFORMATION
  Report Type: 
  Country: IT (occurrence: IT)
  Receive Date: 20121016
  Receipt Date: 20121016
  Transmission Date: 20130627
  Serious: Yes (Hospitalization)
  Sender: FDA-Public Use
  Company Number: IT-GLAXOSMITHKLINE-B0837764A

PATIENT
  Age: 58 Year
  Sex: Female

DRUGS (2)
  1. ACITRETIN [Suspect]
     Indication: PUSTULAR PSORIASIS
     Route: 048
     Dates: start: 20120816, end: 20120818
  2. METHOTREXATE [Suspect]
     Indication: PUSTULAR PSORIASIS
     Route: 031
     Dates: start: 20120816, end: 20120818

REACTIONS (2)
  - Sepsis [Recovering/Resolving]
  - Hyperpyrexia [Recovering/Resolving]
